FAERS Safety Report 23471694 (Version 5)
Quarter: 2024Q2

REPORT INFORMATION
  Report Type: Other
  Country: US (occurrence: US)
  Receive Date: 20240202
  Receipt Date: 20240528
  Transmission Date: 20240717
  Serious: Yes (Other)
  Sender: FDA-Public Use
  Company Number: US-TRAVERE-2024TVT00038

PATIENT
  Sex: Male

DRUGS (3)
  1. FILSPARI [Suspect]
     Active Substance: SPARSENTAN
     Indication: IgA nephropathy
     Dosage: 200MG
     Route: 048
     Dates: start: 20240104
  2. FILSPARI [Suspect]
     Active Substance: SPARSENTAN
     Dosage: 400MG
     Route: 048
     Dates: start: 20240120
  3. FILSPARI [Suspect]
     Active Substance: SPARSENTAN
     Dosage: BACK TO 200MG
     Route: 048
     Dates: start: 202401

REACTIONS (10)
  - Nasal disorder [Unknown]
  - Rash [Unknown]
  - Pruritus [Unknown]
  - Blood pressure decreased [Recovering/Resolving]
  - Oxygen saturation decreased [Unknown]
  - Vision blurred [Unknown]
  - General physical health deterioration [Unknown]
  - Weight decreased [Unknown]
  - Peripheral swelling [Recovered/Resolved]
  - Stress [Recovered/Resolved]
